FAERS Safety Report 4390717-X (Version None)
Quarter: 2004Q3

REPORT INFORMATION
  Report Type: 
  Country: None (occurrence: None)
  Receive Date: 20040701
  Receipt Date: 20040624
  Transmission Date: 20050211
  Serious: Yes (Hospitalization)
  Sender: FDA-Public Use
  Company Number: 2004-UK-00613UK

PATIENT
  Age: 29 Year
  Sex: Male

DRUGS (2)
  1. ORAMORPH SR [Suspect]
     Indication: PAIN
     Dosage: 80-30MG DAILY, PO
     Route: 048
     Dates: start: 19960101
  2. FENTANYL [Suspect]
     Indication: PAIN
     Dosage: 4MCG/HR, ED
     Dates: start: 19960101

REACTIONS (10)
  - ABDOMINAL DISTENSION [None]
  - ABDOMINAL PAIN [None]
  - ABDOMINAL TENDERNESS [None]
  - DIARRHOEA [None]
  - DRUG WITHDRAWAL SYNDROME [None]
  - INTESTINAL FISTULA [None]
  - INTESTINAL STOMA COMPLICATION [None]
  - POST PROCEDURAL FISTULA [None]
  - SMALL INTESTINAL OBSTRUCTION [None]
  - VOMITING [None]
